FAERS Safety Report 9440538 (Version 4)
Quarter: 2013Q3

REPORT INFORMATION
  Report Type: Spontaneous
  Country: US (occurrence: None)
  Receive Date: 20130801
  Receipt Date: 20130912
  Transmission Date: 20140515
  Serious: Yes (Death)
  Sender: FDA-Public Use
  Company Number: 2013SGN00442

PATIENT
  Age: 32 Year
  Sex: Male

DRUGS (6)
  1. ADCETRIS (BRENTUXIMAB VEDOTIN) INJECTION [Suspect]
     Indication: PERIPHERAL T-CELL LYMPHOMA UNSPECIFIED
     Route: 042
     Dates: start: 20130328, end: 20130516
  2. IBUPROFEN (IBUPROFEN) [Concomitant]
  3. LEVOFLOXACIN (LEVOFLOXACIN) [Concomitant]
  4. OTHER AGENTS FOR LOCAL ORAL TREATMENT [Concomitant]
  5. NASONEX (MOMETASONE FUROATE) [Concomitant]
  6. DELTASONE (PREDNISONE) [Concomitant]

REACTIONS (2)
  - Respiratory failure [None]
  - Off label use [None]
